FAERS Safety Report 11365809 (Version 1)
Quarter: 2015Q3

REPORT INFORMATION
  Report Type: Spontaneous
  Country: ES (occurrence: ES)
  Receive Date: 20150811
  Receipt Date: 20150811
  Transmission Date: 20151125
  Serious: Yes (Hospitalization, Other)
  Sender: FDA-Public Use
  Company Number: ES-BAUSCH-BL-2015-018712

PATIENT
  Age: 62 Year
  Sex: Male

DRUGS (27)
  1. FLUOROURACIL. [Suspect]
     Active Substance: FLUOROURACIL
     Route: 065
     Dates: start: 200909, end: 201005
  2. LEUCOVORIN. [Suspect]
     Active Substance: LEUCOVORIN
     Indication: COLORECTAL CANCER
     Route: 065
     Dates: start: 200508, end: 200601
  3. LEUCOVORIN. [Suspect]
     Active Substance: LEUCOVORIN
     Route: 065
     Dates: start: 201203, end: 201207
  4. FLUOROURACIL. [Suspect]
     Active Substance: FLUOROURACIL
     Route: 065
     Dates: start: 201111, end: 201112
  5. LEUCOVORIN. [Suspect]
     Active Substance: LEUCOVORIN
     Route: 065
     Dates: start: 201111, end: 201112
  6. LEUCOVORIN. [Suspect]
     Active Substance: LEUCOVORIN
     Route: 065
     Dates: start: 200606, end: 200608
  7. IRINOTECAN [Suspect]
     Active Substance: IRINOTECAN
     Indication: METASTASES TO LIVER
     Dates: start: 200701, end: 200707
  8. FLUOROURACIL. [Suspect]
     Active Substance: FLUOROURACIL
     Route: 065
     Dates: start: 200802
  9. FLUOROURACIL. [Suspect]
     Active Substance: FLUOROURACIL
     Indication: COLORECTAL CANCER
     Route: 040
     Dates: start: 200508, end: 200601
  10. FLUOROURACIL. [Suspect]
     Active Substance: FLUOROURACIL
     Indication: METASTASES TO LIVER
     Route: 040
     Dates: start: 200508, end: 200601
  11. FLUOROURACIL. [Suspect]
     Active Substance: FLUOROURACIL
     Indication: METASTASES TO LUNG
     Route: 065
     Dates: start: 200606, end: 200608
  12. OXALIPLATIN. [Suspect]
     Active Substance: OXALIPLATIN
     Indication: METASTASES TO LUNG
     Route: 065
     Dates: start: 201111, end: 201112
  13. FLUOROURACIL. [Suspect]
     Active Substance: FLUOROURACIL
     Route: 065
     Dates: start: 200809, end: 200903
  14. FLUOROURACIL. [Suspect]
     Active Substance: FLUOROURACIL
     Route: 065
     Dates: start: 200711, end: 200801
  15. OXALIPLATIN. [Suspect]
     Active Substance: OXALIPLATIN
     Indication: METASTASES TO LIVER
     Route: 065
     Dates: start: 200909, end: 201005
  16. LEUCOVORIN. [Suspect]
     Active Substance: LEUCOVORIN
     Route: 065
     Dates: start: 200809, end: 200903
  17. IRINOTECAN [Suspect]
     Active Substance: IRINOTECAN
     Indication: METASTASES TO LUNG
     Dates: start: 200711, end: 200801
  18. IRINOTECAN [Suspect]
     Active Substance: IRINOTECAN
     Dates: start: 201203, end: 201207
  19. FLUOROURACIL. [Suspect]
     Active Substance: FLUOROURACIL
     Route: 065
     Dates: start: 200701, end: 200707
  20. OXALIPLATIN. [Suspect]
     Active Substance: OXALIPLATIN
     Indication: COLORECTAL CANCER
     Route: 042
     Dates: start: 200508, end: 200601
  21. LEUCOVORIN. [Suspect]
     Active Substance: LEUCOVORIN
     Indication: METASTASES TO LUNG
     Route: 065
     Dates: start: 200711, end: 200801
  22. BEVACIZUMAB [Suspect]
     Active Substance: BEVACIZUMAB
     Indication: METASTASES TO LUNG
     Dates: start: 200809, end: 200903
  23. LEUCOVORIN. [Suspect]
     Active Substance: LEUCOVORIN
     Indication: METASTASES TO LIVER
     Route: 065
     Dates: start: 200701, end: 200707
  24. LEUCOVORIN. [Suspect]
     Active Substance: LEUCOVORIN
     Route: 065
     Dates: start: 200909, end: 201005
  25. BEVACIZUMAB [Suspect]
     Active Substance: BEVACIZUMAB
     Dates: start: 201203, end: 201207
  26. FLUOROURACIL. [Suspect]
     Active Substance: FLUOROURACIL
     Route: 065
     Dates: start: 201203, end: 201207
  27. IRINOTECAN [Suspect]
     Active Substance: IRINOTECAN
     Dates: start: 200809, end: 200903

REACTIONS (10)
  - Diarrhoea [Unknown]
  - Nail disorder [Unknown]
  - Mucosal inflammation [Unknown]
  - Radiculopathy [Unknown]
  - Neurotoxicity [Unknown]
  - Asthenia [Unknown]
  - Palmar-plantar erythrodysaesthesia syndrome [Unknown]
  - Neutropenia [Unknown]
  - Leukopenia [Unknown]
  - Paraesthesia [Unknown]
